FAERS Safety Report 19719907 (Version 6)
Quarter: 2022Q4

REPORT INFORMATION
  Report Type: Report from Study
  Country: BE (occurrence: BE)
  Receive Date: 20210819
  Receipt Date: 20221123
  Transmission Date: 20230113
  Serious: Yes (Hospitalization, Other)
  Sender: FDA-Public Use
  Company Number: BE-ALNYLAM PHARMACEUTICALS, INC.-ALN-2021-001962

PATIENT

DRUGS (13)
  1. OXLUMO [Suspect]
     Active Substance: LUMASIRAN
     Indication: Product used for unknown indication
     Dosage: 6 MILLIGRAM/KILOGRAM, EVERY 3 MONTHS
     Route: 065
     Dates: start: 20210713
  2. OXLUMO [Suspect]
     Active Substance: LUMASIRAN
     Dosage: 6 MILLIGRAM/KILOGRAM,  EVERY 3 MONTHS
     Route: 065
     Dates: start: 20220817
  3. NATRIUMCITRAT [Concomitant]
     Indication: Hyperoxaluria
     Dosage: 100 MILLIGRAM, TID
     Route: 048
     Dates: start: 20170116
  4. PYRIDOXINE [Concomitant]
     Active Substance: PYRIDOXINE
     Indication: Hyperoxaluria
     Dosage: 100 MILLIGRAM, QD
     Route: 048
     Dates: start: 20170116
  5. RENVELA [Concomitant]
     Active Substance: SEVELAMER CARBONATE
     Indication: Hyperphosphataemia
     Dosage: 800 MILLIGRAM, TID
     Route: 048
     Dates: start: 20220214
  6. OMEPRAZOLE [Concomitant]
     Active Substance: OMEPRAZOLE
     Indication: Reflux gastritis
     Dosage: 10 MILLIGRAM, BID
     Route: 048
     Dates: start: 20161024
  7. OMNITROPE [Concomitant]
     Active Substance: SOMATROPIN
     Indication: Blood growth hormone
     Dosage: 1 MILLIGRAM, QD
     Route: 058
  8. ASPIRIN [Concomitant]
     Active Substance: ASPIRIN
     Indication: Anticoagulant therapy
     Dosage: 17 MILLIGRAM, QD
     Route: 048
  9. ADIVIT [Concomitant]
     Indication: Vitamin D
     Dosage: 1 MILLIGRAM, QD
     Route: 048
  10. KEPPRA [Concomitant]
     Active Substance: LEVETIRACETAM
     Indication: Epilepsy
     Dosage: 360 MILLIGRAM, BID
     Route: 048
  11. ARANESP [Concomitant]
     Active Substance: DARBEPOETIN ALFA
     Indication: Blood erythropoietin
     Dosage: 60 MILLIGRAM, WEEKLY
     Route: 042
  12. VENOFER [Concomitant]
     Active Substance: IRON SUCROSE
     Indication: Mineral supplementation
     Dosage: 100 MILLIGRAM, Q3W
     Route: 042
  13. VITAMINS [Concomitant]
     Active Substance: VITAMINS
     Indication: Product used for unknown indication
     Dosage: 60 MICROGRAM
     Route: 065

REACTIONS (5)
  - Liver function test increased [Recovered/Resolved]
  - Hepatosplenomegaly [Recovered/Resolved]
  - Gamma-glutamyltransferase increased [Not Recovered/Not Resolved]
  - Multisystem inflammatory syndrome in children [Recovered/Resolved]
  - COVID-19 [Unknown]

NARRATIVE: CASE EVENT DATE: 20220401
